FAERS Safety Report 11058955 (Version 1)
Quarter: 2015Q2

REPORT INFORMATION
  Report Type: Spontaneous
  Country: US (occurrence: None)
  Receive Date: 20150420
  Receipt Date: 20150420
  Transmission Date: 20150821
  Serious: No
  Sender: FDA-Public Use
  Company Number: AEGR001130

PATIENT
  Age: 23 Year
  Sex: Male
  Weight: 60.8 kg

DRUGS (6)
  1. CRESTOR [Concomitant]
     Active Substance: ROSUVASTATIN CALCIUM
  2. ASPIRIN (ACETYLSALICYLIC ACID) [Concomitant]
     Active Substance: ASPIRIN
  3. PLAVIX (CLOPIDOGREL BISULFATE) [Concomitant]
  4. METOPROLOL (METOPROLOL TARTRATE) [Concomitant]
     Active Substance: METOPROLOL TARTRATE
  5. JUXTAPID [Suspect]
     Active Substance: LOMITAPIDE MESYLATE
     Indication: TYPE IIA HYPERLIPIDAEMIA
     Route: 048
     Dates: start: 20140722, end: 201409
  6. ZETIA [Concomitant]
     Active Substance: EZETIMIBE

REACTIONS (2)
  - Headache [None]
  - Dehydration [None]

NARRATIVE: CASE EVENT DATE: 201412
